FAERS Safety Report 7611868-X (Version None)
Quarter: 2011Q3

REPORT INFORMATION
  Report Type: 
  Country: None (occurrence: None)
  Receive Date: 20110715
  Receipt Date: 20110712
  Transmission Date: 20111222
  Serious: Yes (Life-Threatening)
  Sender: FDA-Public Use
  Company Number: JP-PFIZER INC-2011144601

PATIENT
  Age: 21 Year
  Sex: Male
  Weight: 70 kg

DRUGS (4)
  1. VANCOMYCIN HYCHLORIDE [Suspect]
     Indication: WOUND INFECTION
     Dosage: UNK
     Route: 042
     Dates: start: 20080901
  2. ZYVOX [Suspect]
     Dosage: 600 MG, 2X/DAY
     Route: 042
     Dates: start: 20081007, end: 20081030
  3. TARGOCID [Suspect]
     Indication: WOUND INFECTION
     Dosage: 400 MG, 2X/DAY
     Route: 042
     Dates: start: 20081031, end: 20081101
  4. TARGOCID [Suspect]
     Dosage: 400 MG, 1X/DAY
     Route: 042
     Dates: start: 20081102, end: 20081106

REACTIONS (1)
  - HISTIOCYTOSIS HAEMATOPHAGIC [None]
